FAERS Safety Report 5040654-2 (Version None)
Quarter: 2006Q2

REPORT INFORMATION
  Report Type: 
  Country: None (occurrence: None)
  Receive Date: 20060629
  Receipt Date: 20060629
  Transmission Date: 20061013
  Serious: Yes (Hospitalization)
  Sender: FDA-Public Use
  Company Number: None

PATIENT
  Age: 60 Year
  Sex: Male
  Weight: 44.6 kg

DRUGS (2)
  1. LISINOPRIL [Suspect]
     Indication: CARDIAC FAILURE CONGESTIVE
     Dosage: 10 MG PO DAILY
     Route: 048
     Dates: start: 20050101, end: 20060412
  2. LISINOPRIL [Suspect]
     Indication: HYPERTENSION
     Dosage: 10 MG PO DAILY
     Route: 048
     Dates: start: 20050101, end: 20060412

REACTIONS (1)
  - SWELLING FACE [None]
